FAERS Safety Report 16755836 (Version 4)
Quarter: 2020Q1

REPORT INFORMATION
  Report Type: Spontaneous
  Country: LV (occurrence: LV)
  Receive Date: 20190829
  Receipt Date: 20200214
  Transmission Date: 20200409
  Serious: Yes (Hospitalization, Disabling, Congenital Anomaly, Other)
  Sender: FDA-Public Use
  Company Number: LV-AMERICAN REGENT INC-20181739

PATIENT

DRUGS (9)
  1. VENOFER [Suspect]
     Active Substance: IRON SUCROSE
     Indication: FOETAL EXPOSURE DURING PREGNANCY
     Dosage: 100 MG
     Route: 064
  2. PENICILLIN G BENZATHINE [Suspect]
     Active Substance: PENICILLIN G BENZATHINE
     Indication: FOETAL EXPOSURE DURING PREGNANCY
     Dosage: 4 GM (1 GM, 4 IN 1 D)
     Route: 064
  3. FERRUM [Suspect]
     Active Substance: FERROUS FUMARATE
     Indication: FOETAL EXPOSURE DURING PREGNANCY
     Dosage: 100 MG THREE TIMES A DAY
     Route: 064
  4. CEFUROXIME. [Suspect]
     Active Substance: CEFUROXIME
     Dosage: 3000 MG (1500 MG, 2 IN 1 D)
     Route: 064
  5. PARACETAMOL [Suspect]
     Active Substance: ACETAMINOPHEN
     Indication: FOETAL EXPOSURE DURING PREGNANCY
     Dosage: 1000 MG (500 MG, 2 IN 1 D)
     Route: 064
  6. AZITHROMYCINUM [Suspect]
     Active Substance: AZITHROMYCIN
     Indication: FOETAL EXPOSURE DURING PREGNANCY
     Dosage: 500 MG (500 MG, 1 IN 1 D)
     Route: 064
  7. FERINJECT [Suspect]
     Active Substance: FERRIC CARBOXYMALTOSE
     Indication: FOETAL EXPOSURE DURING PREGNANCY
     Dosage: 50 MILLIGRAM PER MILLILITRE
     Route: 064
  8. MALTOFER (IRON III HYDROXIDE POLYMALTOSE COMPLEX) [Suspect]
     Active Substance: IRON POLYMALTOSE
     Indication: FOETAL EXPOSURE DURING PREGNANCY
     Dosage: UNKNOWN
     Route: 064
  9. CEFUROXIME. [Suspect]
     Active Substance: CEFUROXIME
     Indication: FOETAL EXPOSURE DURING PREGNANCY
     Dosage: 1500 MG (750 MG, 2 IN 1 D)
     Route: 064

REACTIONS (7)
  - Foetal exposure during pregnancy [Unknown]
  - Female genital tract fistula [Not Recovered/Not Resolved]
  - Oesophageal atresia [Not Recovered/Not Resolved]
  - Anal atresia [Not Recovered/Not Resolved]
  - Respiratory distress [Unknown]
  - Duodenal atresia [Not Recovered/Not Resolved]
  - Spine malformation [Not Recovered/Not Resolved]
